FAERS Safety Report 7291424-6 (Version None)
Quarter: 2011Q1

REPORT INFORMATION
  Report Type: 
  Country: None (occurrence: None)
  Receive Date: 20110214
  Receipt Date: 20110203
  Transmission Date: 20110831
  Serious: Yes (Other)
  Sender: FDA-Public Use
  Company Number: B0699415A

PATIENT
  Sex: Male

DRUGS (5)
  1. OMEPRAZOLE [Concomitant]
  2. TRINIPLAS [Concomitant]
  3. AMOXICILLIN AND CLAVULANATE POTASSIUM [Suspect]
     Indication: PLEURAL EFFUSION
     Route: 042
     Dates: start: 20110201, end: 20110201
  4. DILTIAZEM HCL [Concomitant]
  5. CONTRAMAL [Concomitant]
     Route: 048

REACTIONS (3)
  - DYSPNOEA [None]
  - ERYTHEMA [None]
  - PRURITUS [None]
